FAERS Safety Report 9009518 (Version 1)
Quarter: 2013Q1

REPORT INFORMATION
  Report Type: Spontaneous
  Country: KE (occurrence: KE)
  Receive Date: 20130110
  Receipt Date: 20130110
  Transmission Date: 20140127
  Serious: Yes (Other)
  Sender: FDA-Public Use
  Company Number: KE-GLAXOSMITHKLINE-B0821149A

PATIENT
  Age: 23 Year
  Sex: Female
  Weight: 53 kg

DRUGS (2)
  1. ZINNAT [Suspect]
     Indication: TONSILLITIS
     Dosage: 1G PER DAY
     Route: 065
     Dates: start: 20120727, end: 20120730
  2. DICLOFENAC [Concomitant]
     Indication: HEADACHE
     Route: 065
     Dates: start: 20120727, end: 20120730

REACTIONS (6)
  - Oedema mouth [Unknown]
  - Purulent discharge [Unknown]
  - Ocular hyperaemia [Unknown]
  - Eyelid oedema [Unknown]
  - Lip oedema [Unknown]
  - Conjunctivitis infective [Unknown]
